FAERS Safety Report 16576613 (Version 1)
Quarter: 2019Q3

REPORT INFORMATION
  Report Type: Spontaneous
  Country: FR (occurrence: FR)
  Receive Date: 20190716
  Receipt Date: 20190716
  Transmission Date: 20191004
  Serious: Yes (Hospitalization, Disabling, Other)
  Sender: FDA-Public Use
  Company Number: FR-AMGEN-FRASP2019110812

PATIENT
  Age: 68 Year
  Sex: Female
  Weight: 60 kg

DRUGS (1)
  1. PROLIA [Suspect]
     Active Substance: DENOSUMAB
     Indication: BONE LOSS
     Dosage: 60 MILLIGRAM, Q6MO
     Route: 058
     Dates: start: 201504, end: 201809

REACTIONS (2)
  - Spinal fracture [Not Recovered/Not Resolved]
  - Multiple fractures [Not Recovered/Not Resolved]

NARRATIVE: CASE EVENT DATE: 201902
